FAERS Safety Report 7368347-7 (Version None)
Quarter: 2011Q1

REPORT INFORMATION
  Report Type: 
  Country: None (occurrence: None)
  Receive Date: 20110323
  Receipt Date: 20110317
  Transmission Date: 20110831
  Serious: No
  Sender: FDA-Public Use
  Company Number: US-PFIZER INC-2011059767

PATIENT
  Sex: Male

DRUGS (7)
  1. PROPRANOLOL [Concomitant]
     Indication: POST-TRAUMATIC STRESS DISORDER
     Dosage: UNK, 3X/DAY
  2. TOPAMAX [Concomitant]
     Indication: TREMOR
  3. TOPAMAX [Concomitant]
     Indication: NERVOUS SYSTEM DISORDER
  4. LYRICA [Suspect]
     Indication: NERVOUS SYSTEM DISORDER
     Dosage: 75 MG, 1X/DAY
     Route: 048
     Dates: start: 20110303
  5. TOPAMAX [Concomitant]
     Indication: CONVULSION
     Dosage: 100 UNK, UNK
     Dates: start: 20070101
  6. TOPAMAX [Concomitant]
     Indication: HEADACHE
  7. GABAPENTIN [Suspect]
     Indication: NERVOUS SYSTEM DISORDER
     Dosage: 300 MG, 3X/DAY
     Route: 048

REACTIONS (7)
  - PAIN IN EXTREMITY [None]
  - HYPOAESTHESIA [None]
  - DRUG INEFFECTIVE [None]
  - ARTHRALGIA [None]
  - PAIN [None]
  - MALAISE [None]
  - VOMITING [None]
